FAERS Safety Report 7268186-1 (Version None)
Quarter: 2011Q1

REPORT INFORMATION
  Report Type: 
  Country: None (occurrence: None)
  Receive Date: 20110201
  Receipt Date: 20110119
  Transmission Date: 20110831
  Serious: Yes (Other)
  Sender: FDA-Public Use
  Company Number: PHHY2010CA89225

PATIENT

DRUGS (3)
  1. BETA BLOCKING AGENTS [Concomitant]
  2. CALCIUM CHANNEL BLOCKERS [Concomitant]
  3. ALISKIREN [Suspect]

REACTIONS (2)
  - CARDIAC FAILURE [None]
  - CORONARY ARTERY DISEASE [None]
